FAERS Safety Report 20906126 (Version 1)
Quarter: 2022Q2

REPORT INFORMATION
  Report Type: Spontaneous
  Country: US (occurrence: US)
  Receive Date: 20220602
  Receipt Date: 20220602
  Transmission Date: 20220721
  Serious: No
  Sender: FDA-Public Use
  Company Number: US-COLLEGIUM PHARMACEUTICAL, INC.-2021CGM00777

PATIENT
  Age: 64 Year
  Sex: Male
  Weight: 113.38 kg

DRUGS (8)
  1. XTAMPZA ER [Suspect]
     Active Substance: OXYCODONE
     Indication: Pain
     Dosage: 13.5 MG, 2X/DAY (EVERY 12 HOURS)
     Route: 048
     Dates: start: 20210611, end: 20210707
  2. MELATONIN [Concomitant]
     Active Substance: MELATONIN
     Dosage: UNK, AS NEEDED
  3. LYRICA [Concomitant]
     Active Substance: PREGABALIN
  4. ADULT MVI (MULTIVITAMIN) [Concomitant]
  5. ASPIRIN [Concomitant]
     Active Substance: ASPIRIN
  6. HYDROCHLOROTHIAZIDE [Concomitant]
     Active Substance: HYDROCHLOROTHIAZIDE
  7. VALSARTAN [Concomitant]
     Active Substance: VALSARTAN
  8. CELEBREX [Concomitant]
     Active Substance: CELECOXIB

REACTIONS (2)
  - Vomiting [Recovered/Resolved]
  - Drug ineffective [Recovered/Resolved]

NARRATIVE: CASE EVENT DATE: 20210611
